FAERS Safety Report 10588918 (Version 1)
Quarter: 2014Q4

REPORT INFORMATION
  Report Type: Spontaneous
  Country: US (occurrence: US)
  Receive Date: 20141117
  Receipt Date: 20141117
  Transmission Date: 20150529
  Serious: No
  Sender: FDA-Public Use
  Company Number: US-DRREDDYS-USA/USA/14/0042813

PATIENT
  Age: 60 Year
  Sex: Male

DRUGS (1)
  1. SUMATRIPTAN INJECTION USP, 6 MG/0.5 ML [Suspect]
     Active Substance: SUMATRIPTAN
     Indication: CLUSTER HEADACHE
     Dosage: USE AS DIRECTED. MAY REPEAT IN 2 HOURS OR USE 2 IN 24 HOURS AS NEEDED FOR CLUSTER HEADACHES.
     Route: 065
     Dates: start: 20140825

REACTIONS (2)
  - Drug dose omission [Unknown]
  - Product physical issue [Unknown]
